FAERS Safety Report 16538063 (Version 4)
Quarter: 2020Q3

REPORT INFORMATION
  Report Type: Spontaneous
  Country: US (occurrence: US)
  Receive Date: 20190708
  Receipt Date: 20200909
  Transmission Date: 20201102
  Serious: Yes (Other)
  Sender: FDA-Public Use
  Company Number: US-SA-2019SA178810

PATIENT

DRUGS (3)
  1. DUPIXENT [Suspect]
     Active Substance: DUPILUMAB
     Indication: ECZEMA
  2. BACLOFEN. [Suspect]
     Active Substance: BACLOFEN
     Indication: ILLNESS
  3. DUPIXENT [Suspect]
     Active Substance: DUPILUMAB
     Indication: DERMATITIS ATOPIC
     Dosage: 300 MG, QOW
     Route: 058
     Dates: start: 20190322

REACTIONS (9)
  - Helminthic infection [Unknown]
  - Hypersensitivity [Unknown]
  - Illness [Unknown]
  - Dry eye [Unknown]
  - Product dose omission in error [Unknown]
  - Hypersomnia [Unknown]
  - Breast induration [Unknown]
  - Skin lesion [Unknown]
  - Dermatitis atopic [Unknown]

NARRATIVE: CASE EVENT DATE: 2020
